FAERS Safety Report 9558704 (Version 1)
Quarter: 2013Q3

REPORT INFORMATION
  Report Type: Spontaneous
  Country: US (occurrence: US)
  Receive Date: 20130926
  Receipt Date: 20130926
  Transmission Date: 20140515
  Serious: No
  Sender: FDA-Public Use
  Company Number: US-BIOGENIDEC-2013BI046157

PATIENT
  Age: 44 Year
  Sex: Female

DRUGS (11)
  1. TECFIDERA [Suspect]
     Indication: MULTIPLE SCLEROSIS
     Route: 048
     Dates: start: 20130508, end: 20130515
  2. TECFIDERA [Suspect]
     Indication: MULTIPLE SCLEROSIS
     Route: 048
     Dates: start: 20130515
  3. FLOMAX [Concomitant]
  4. GABAPENTIN [Concomitant]
  5. IMODIUM A-D [Concomitant]
  6. TYLENOL [Concomitant]
  7. VALIUM [Concomitant]
  8. VITAMIN D [Concomitant]
  9. VITAMIN B12 [Concomitant]
  10. ZOLOFT [Concomitant]
  11. ZOLOFT [Concomitant]

REACTIONS (8)
  - Headache [Not Recovered/Not Resolved]
  - Abdominal pain upper [Not Recovered/Not Resolved]
  - Flushing [Recovered/Resolved]
  - Diarrhoea [Not Recovered/Not Resolved]
  - Nausea [Not Recovered/Not Resolved]
  - Vomiting [Unknown]
  - Prescribed underdose [Unknown]
  - Abdominal pain [Not Recovered/Not Resolved]
